FAERS Safety Report 24154141 (Version 1)
Quarter: 2024Q3

REPORT INFORMATION
  Report Type: Spontaneous
  Country: US (occurrence: US)
  Receive Date: 20240730
  Receipt Date: 20240730
  Transmission Date: 20241017
  Serious: No
  Sender: JOHNSON AND JOHNSON
  Company Number: US-JNJFOC-20240737283

PATIENT

DRUGS (8)
  1. PEPCID [Suspect]
     Active Substance: FAMOTIDINE
     Indication: Urticaria
     Route: 065
  2. XOLAIR [Concomitant]
     Active Substance: OMALIZUMAB
     Indication: Product used for unknown indication
     Route: 065
  3. XYZAL [Concomitant]
     Active Substance: LEVOCETIRIZINE DIHYDROCHLORIDE
     Indication: Urticaria
     Route: 065
  4. HYDROXYZINE [Concomitant]
     Active Substance: HYDROXYZINE HYDROCHLORIDE
     Indication: Urticaria
     Route: 065
  5. PREDNISONE [Concomitant]
     Active Substance: PREDNISONE
     Indication: Urticaria
     Dosage: LOW DOSE
     Route: 065
  6. ZINC [Concomitant]
     Active Substance: ZINC
     Indication: Nutritional supplementation
     Route: 065
  7. COPPER [Concomitant]
     Active Substance: COPPER
     Indication: Nutritional supplementation
     Route: 065
  8. QUERCETOL C [Concomitant]
     Indication: Nutritional supplementation
     Route: 065

REACTIONS (1)
  - Product use in unapproved indication [Unknown]
